FAERS Safety Report 7641269-X (Version None)
Quarter: 2011Q3

REPORT INFORMATION
  Report Type: 
  Country: None (occurrence: None)
  Receive Date: 20110728
  Receipt Date: 20110728
  Transmission Date: 20111222
  Serious: Yes (Other)
  Sender: FDA-Public Use
  Company Number: PHHO2009ES15307

PATIENT
  Sex: Female
  Weight: 45 kg

DRUGS (3)
  1. EXELON [Suspect]
     Indication: DEMENTIA ALZHEIMER'S TYPE
     Dosage: 15 CM2
     Route: 062
     Dates: start: 20090121, end: 20091114
  2. BLINDED NO TREATMENT RECEIVED [Suspect]
     Indication: DEMENTIA ALZHEIMER'S TYPE
     Dosage: 15 CM2
     Route: 062
     Dates: start: 20090121, end: 20091114
  3. EXELON [Suspect]
     Indication: DEMENTIA ALZHEIMER'S TYPE
     Dosage: NOT SPECIFIED
     Route: 062
     Dates: start: 20080125, end: 20090120

REACTIONS (5)
  - DECREASED APPETITE [None]
  - VOMITING [None]
  - DIZZINESS [None]
  - TREMOR [None]
  - FALL [None]
